FAERS Safety Report 16919527 (Version 7)
Quarter: 2022Q1

REPORT INFORMATION
  Report Type: Report from Study
  Country: GB (occurrence: GB)
  Receive Date: 20191015
  Receipt Date: 20220323
  Transmission Date: 20220424
  Serious: Yes (Hospitalization, Other)
  Sender: FDA-Public Use
  Company Number: GB-ROCHE-2218085

PATIENT
  Age: 48 Year
  Sex: Female

DRUGS (61)
  1. TRASTUZUMAB [Suspect]
     Active Substance: TRASTUZUMAB
     Indication: Breast cancer
     Dosage: 1092 MILLIGRAM, Q3W
     Route: 042
     Dates: start: 20170303, end: 20170303
  2. TRASTUZUMAB [Suspect]
     Active Substance: TRASTUZUMAB
     Dosage: 819 MILLIGRAM, Q3W
     Route: 042
     Dates: start: 20170324, end: 20170509
  3. TRASTUZUMAB [Suspect]
     Active Substance: TRASTUZUMAB
     Dosage: 789 MILLIGRAM, Q3W
     Route: 042
     Dates: start: 20170606, end: 20171108
  4. TRASTUZUMAB [Suspect]
     Active Substance: TRASTUZUMAB
     Dosage: 777 MILLIGRAM, Q3W
     Route: 042
     Dates: start: 20171129, end: 20171129
  5. DOCETAXEL [Suspect]
     Active Substance: DOCETAXEL
     Indication: Breast cancer
     Dosage: 150 MILLIGRAM, Q3W
     Route: 042
     Dates: start: 20170303, end: 20170303
  6. DOCETAXEL [Suspect]
     Active Substance: DOCETAXEL
     Dosage: 120 MILLIGRAM, Q3W
     Route: 042
     Dates: start: 20170324, end: 20170627
  7. DOCETAXEL [Suspect]
     Active Substance: DOCETAXEL
     Dosage: 120 MILLIGRAM
     Route: 042
     Dates: start: 20170324, end: 20190627
  8. ADO-TRASTUZUMAB EMTANSINE [Suspect]
     Active Substance: ADO-TRASTUZUMAB EMTANSINE
     Indication: Breast cancer
     Dosage: 460 MILLIGRAM, Q3W
     Route: 042
     Dates: start: 20171218, end: 20180223
  9. ADO-TRASTUZUMAB EMTANSINE [Suspect]
     Active Substance: ADO-TRASTUZUMAB EMTANSINE
     Dosage: 400 MILLIGRAM, Q3W
     Route: 042
     Dates: start: 20180815, end: 20181203
  10. ADO-TRASTUZUMAB EMTANSINE [Suspect]
     Active Substance: ADO-TRASTUZUMAB EMTANSINE
     Dosage: 420 MILLIGRAM, Q3W
     Route: 042
     Dates: start: 20180524, end: 20180725
  11. ADO-TRASTUZUMAB EMTANSINE [Suspect]
     Active Substance: ADO-TRASTUZUMAB EMTANSINE
     Dosage: 380 MILLIGRAM, Q3W
     Route: 042
     Dates: start: 20181203, end: 20181203
  12. PERTUZUMAB [Suspect]
     Active Substance: PERTUZUMAB
     Indication: Breast cancer
     Dosage: 840 MILLIGRAM, Q3W
     Route: 042
     Dates: start: 20170303, end: 20170303
  13. PERTUZUMAB [Suspect]
     Active Substance: PERTUZUMAB
     Dosage: 420 MILLIGRAM, Q3W
     Route: 042
     Dates: start: 20170327, end: 20170327
  14. METOCLOPRAMIDE [Concomitant]
     Active Substance: METOCLOPRAMIDE
     Indication: Illness
     Dosage: 10 MILLIGRAM, 0.33 DAY
     Route: 048
     Dates: start: 20190103
  15. LANSOPRAZOLE [Concomitant]
     Active Substance: LANSOPRAZOLE
     Indication: Dyspepsia
     Dosage: 30 MILLIGRAM
     Route: 065
     Dates: start: 201703
  16. LANSOPRAZOLE [Concomitant]
     Active Substance: LANSOPRAZOLE
     Dosage: UNK
     Route: 065
     Dates: start: 201703
  17. MORPHINE SULFATE [Concomitant]
     Active Substance: MORPHINE SULFATE
     Indication: Pain
     Dosage: 10 MILLIGRAM
     Route: 048
     Dates: start: 20171001, end: 20171124
  18. PERINDOPRIL [Concomitant]
     Active Substance: PERINDOPRIL
     Dosage: 8 MILLIGRAM
     Route: 065
  19. MORPHINE [Concomitant]
     Active Substance: MORPHINE
     Indication: Pain
     Dosage: 15 MILLIGRAM
     Route: 048
     Dates: start: 201702, end: 20180702
  20. MORPHINE [Concomitant]
     Active Substance: MORPHINE
     Dosage: 15 MILLIGRAM, 0.5 DAY
     Route: 048
     Dates: start: 201702, end: 201807
  21. DOXAZOSIN [Concomitant]
     Active Substance: DOXAZOSIN MESYLATE
     Indication: Product used for unknown indication
     Dosage: 4 MILLIGRAM
     Route: 065
  22. DOXAZOSIN [Concomitant]
     Active Substance: DOXAZOSIN MESYLATE
     Dosage: UNK
  23. DOMPERIDONE [Concomitant]
     Active Substance: DOMPERIDONE
     Indication: Nausea
     Dosage: 30 MILLIGRAM, QD
     Route: 048
  24. HALOPERIDOL [Concomitant]
     Active Substance: HALOPERIDOL
     Indication: Nausea
     Dosage: 1.5 MILLIGRAM
     Route: 048
  25. MAGNESIUM GLYCEROPHOSPHATE [Concomitant]
     Active Substance: MAGNESIUM GLYCEROPHOSPHATE
     Indication: Hypomagnesaemia
     Dosage: 3 DOSAGE FORM, QD
     Route: 048
  26. MAGNESIUM GLYCEROPHOSPHATE [Concomitant]
     Active Substance: MAGNESIUM GLYCEROPHOSPHATE
     Dosage: 0.33 DAY
     Route: 048
     Dates: start: 20190528, end: 20190602
  27. LORAZEPAM [Concomitant]
     Active Substance: LORAZEPAM
     Indication: Anxiety
     Dosage: 0.5 MILLIGRAM
     Route: 048
  28. DOXYCYCLINE [Concomitant]
     Active Substance: DOXYCYCLINE
     Indication: Lower respiratory tract infection
     Dosage: UNK
  29. DOXYCYCLINE [Concomitant]
     Active Substance: DOXYCYCLINE
     Dosage: UNK
     Route: 065
     Dates: start: 20180822, end: 20180828
  30. OXYCODONE [Concomitant]
     Active Substance: OXYCODONE
     Indication: Pain
     Dosage: 5 TABLET
     Route: 048
     Dates: start: 20171124
  31. METHADONE [Concomitant]
     Active Substance: METHADONE HYDROCHLORIDE
     Indication: Pain
     Dosage: 20 MILLIGRAM, QD (10 MG, 0.5 DAY)
     Route: 048
  32. ANIDULAFUNGIN [Concomitant]
     Active Substance: ANIDULAFUNGIN
     Indication: Fungal infection
     Dosage: 100 MILLIGRAM, QD
     Route: 042
     Dates: end: 20180929
  33. ANIDULAFUNGIN [Concomitant]
     Active Substance: ANIDULAFUNGIN
     Indication: Dyspnoea
     Dosage: 200 MILLIGRAM, QD
     Route: 042
     Dates: start: 20181223, end: 20181227
  34. ANIDULAFUNGIN [Concomitant]
     Active Substance: ANIDULAFUNGIN
     Dosage: 100 MILLIGRAM, QD
     Route: 042
     Dates: start: 20181223, end: 20181227
  35. SENNA [Concomitant]
     Active Substance: SENNA LEAF\SENNOSIDES\SENNOSIDES A AND B
     Indication: Constipation
     Dosage: 15 MILLIGRAM
     Route: 048
  36. SENNA [Concomitant]
     Active Substance: SENNA LEAF\SENNOSIDES\SENNOSIDES A AND B
     Dosage: UNK
     Route: 048
  37. VORICONAZOLE [Concomitant]
     Active Substance: VORICONAZOLE
     Indication: Fungal infection
     Dosage: 400 MILLIGRAM, QD (200 MG, 0.5 DAY)
     Route: 048
     Dates: end: 20181015
  38. VORICONAZOLE [Concomitant]
     Active Substance: VORICONAZOLE
     Dosage: 200 MILLIGRAM, QD
     Route: 048
     Dates: end: 20181015
  39. DOCUSATE SODIUM [Concomitant]
     Active Substance: DOCUSATE SODIUM
     Dosage: 200 MILLIGRAM
     Route: 048
  40. ZOPICLONE [Concomitant]
     Active Substance: ZOPICLONE
     Indication: Insomnia
     Dosage: 7.5 MILLIGRAM
     Route: 048
  41. POLYETHYLENE GLYCOL 3350\POTASSIUM CHLORIDE\SODIUM BICARBONATE\SODIUM [Concomitant]
     Active Substance: POLYETHYLENE GLYCOL 3350\POTASSIUM CHLORIDE\SODIUM BICARBONATE\SODIUM CHLORIDE
     Indication: Constipation
     Dosage: 2 DOSAGE FORM, QD
     Route: 048
  42. POLYETHYLENE GLYCOL 3350\POTASSIUM CHLORIDE\SODIUM BICARBONATE\SODIUM [Concomitant]
     Active Substance: POLYETHYLENE GLYCOL 3350\POTASSIUM CHLORIDE\SODIUM BICARBONATE\SODIUM CHLORIDE
     Dosage: 0.5 DOSAGE FORM, QD
     Route: 048
  43. POLYETHYLENE GLYCOL 3350\POTASSIUM CHLORIDE\SODIUM BICARBONATE\SODIUM [Concomitant]
     Active Substance: POLYETHYLENE GLYCOL 3350\POTASSIUM CHLORIDE\SODIUM BICARBONATE\SODIUM CHLORIDE
     Dosage: UNK
  44. MIRTAZAPINE [Concomitant]
     Active Substance: MIRTAZAPINE
     Indication: Depression
     Dosage: 30 MILLIGRAM
     Route: 048
  45. MIRTAZAPINE [Concomitant]
     Active Substance: MIRTAZAPINE
     Indication: Anxiety
     Dosage: 15 MILLIGRAM, QD
     Route: 048
  46. GABAPENTIN [Concomitant]
     Active Substance: GABAPENTIN
     Indication: Pain
     Dosage: 200 MILLIGRAM
     Route: 048
     Dates: end: 20180611
  47. CIPROFLOXACIN [Concomitant]
     Active Substance: CIPROFLOXACIN
     Indication: Dyspnoea
     Dosage: 1000 MILLIGRAM, QD (500 MG, 0.5 DAY)
     Route: 048
     Dates: start: 20190102, end: 20190108
  48. DEXAMETHASONE [Concomitant]
     Active Substance: DEXAMETHASONE
     Indication: Dyspnoea
     Dosage: 2 MILLIGRAM, QD
     Route: 048
     Dates: start: 20190103, end: 20190117
  49. DEXAMETHASONE [Concomitant]
     Active Substance: DEXAMETHASONE
     Indication: Back pain
     Dosage: 8 MILLIGRAM, QD
     Route: 048
     Dates: start: 20190131, end: 20190209
  50. DEXAMETHASONE [Concomitant]
     Active Substance: DEXAMETHASONE
     Dosage: 15 MILLIGRAM, QD
     Route: 048
     Dates: start: 20190103, end: 20190117
  51. DEXAMETHASONE [Concomitant]
     Active Substance: DEXAMETHASONE
     Dosage: 10 MILLIGRAM, QD
     Route: 048
     Dates: end: 20190209
  52. NALOXEGOL [Concomitant]
     Active Substance: NALOXEGOL
     Indication: Dyspnoea
     Dosage: 12.5 MILLIGRAM, Q2D
     Route: 048
     Dates: start: 20181222
  53. OSELTAMIVIR [Concomitant]
     Active Substance: OSELTAMIVIR
     Indication: Influenza
     Dosage: 150 MILLIGRAM, QD (75 MILLIGRAM, 0.5 DAY)
     Route: 048
     Dates: start: 20190207, end: 20190212
  54. OSELTAMIVIR [Concomitant]
     Active Substance: OSELTAMIVIR
     Dosage: 0.5 DAY
     Route: 048
     Dates: start: 20190207, end: 20190212
  55. CITALOPRAM [Concomitant]
     Active Substance: CITALOPRAM HYDROBROMIDE
     Indication: Anxiety
     Dosage: 20 MILLIGRAM, QD
     Route: 048
     Dates: start: 20190226
  56. PREGABALIN [Concomitant]
     Active Substance: PREGABALIN
     Indication: Back pain
     Dosage: 100 MILLIGRAM, QD
     Route: 048
     Dates: start: 20190207, end: 20190221
  57. PREGABALIN [Concomitant]
     Active Substance: PREGABALIN
     Dosage: 50 MILLIGRAM, QD
     Route: 048
     Dates: start: 20190207, end: 20190221
  58. LINAGLIPTIN [Concomitant]
     Active Substance: LINAGLIPTIN
     Indication: Fall
     Dosage: 5 MILLIGRAM, QD
     Route: 048
     Dates: start: 20190301
  59. FUROSEMIDE [Concomitant]
     Active Substance: FUROSEMIDE
     Indication: Dyspnoea
     Dosage: 20 MILLIGRAM, QD
     Route: 048
     Dates: start: 20190226
  60. VANCOMYCIN [Concomitant]
     Active Substance: VANCOMYCIN
     Indication: Bacteraemia
     Dosage: 1500 MILLIGRAM, 0.5 DAY
     Route: 042
     Dates: start: 20190314, end: 20190320
  61. MORPHINE SULFATE [Concomitant]
     Active Substance: MORPHINE SULFATE
     Indication: Pain
     Dosage: SOLUTION
     Route: 048
     Dates: start: 20171001, end: 20171124

REACTIONS (9)
  - Lethargy [Recovered/Resolved with Sequelae]
  - Body temperature increased [Recovered/Resolved]
  - Lower respiratory tract infection [Recovered/Resolved]
  - Influenza [Recovered/Resolved with Sequelae]
  - Pyrexia [Recovered/Resolved with Sequelae]
  - Pneumonia [Recovered/Resolved with Sequelae]
  - Nausea [Recovered/Resolved with Sequelae]
  - Abdominal pain upper [Recovered/Resolved with Sequelae]
  - Cough [Recovered/Resolved with Sequelae]

NARRATIVE: CASE EVENT DATE: 20180527
